FAERS Safety Report 15151419 (Version 6)
Quarter: 2020Q1

REPORT INFORMATION
  Report Type: Spontaneous
  Country: US (occurrence: US)
  Receive Date: 20180716
  Receipt Date: 20200210
  Transmission Date: 20200409
  Serious: Yes (Hospitalization)
  Sender: FDA-Public Use
  Company Number: US-ACTELION-A-US2018-175242

PATIENT
  Sex: Female

DRUGS (3)
  1. OXYGEN. [Concomitant]
     Active Substance: OXYGEN
  2. AMLODIPINE [Concomitant]
     Active Substance: AMLODIPINE BESYLATE
  3. OPSUMIT [Suspect]
     Active Substance: MACITENTAN
     Indication: PULMONARY ARTERIAL HYPERTENSION
     Dosage: 10 MG, QD
     Route: 048
     Dates: start: 20161031

REACTIONS (8)
  - Unevaluable event [Unknown]
  - Hospitalisation [Unknown]
  - Product dose omission [Unknown]
  - Dyspnoea [Unknown]
  - Atrioventricular block [Unknown]
  - Cardiac operation [Unknown]
  - Stent placement [Unknown]
  - Oxygen therapy [Unknown]

NARRATIVE: CASE EVENT DATE: 2018
